FAERS Safety Report 6409890-4 (Version None)
Quarter: 2009Q4

REPORT INFORMATION
  Report Type: 
  Country: None (occurrence: None)
  Receive Date: 20091022
  Receipt Date: 20091015
  Transmission Date: 20100525
  Serious: Yes (Other)
  Sender: FDA-Public Use
  Company Number: US-AMGEN-QUU367626

PATIENT
  Sex: Female
  Weight: 44.5 kg

DRUGS (7)
  1. EPOGEN [Suspect]
     Indication: DIALYSIS
     Dates: start: 20050930
  2. LISINOPRIL [Concomitant]
  3. AMLODIPINE [Concomitant]
  4. ZEMPLAR [Concomitant]
  5. FERRLECIT [Concomitant]
  6. UNSPECIFIED MEDICATION [Concomitant]
  7. SENSIPAR [Concomitant]

REACTIONS (1)
  - ANAEMIA [None]
